FAERS Safety Report 8115007-0 (Version None)
Quarter: 2012Q1

REPORT INFORMATION
  Report Type: 
  Country: None (occurrence: None)
  Receive Date: 20120206
  Receipt Date: 20120131
  Transmission Date: 20120608
  Serious: Yes (Other)
  Sender: FDA-Public Use
  Company Number: US-BAYER-2011-118683

PATIENT
  Age: 63 Year
  Sex: Female

DRUGS (1)
  1. NEXAVAR [Suspect]
     Indication: RENAL CELL CARCINOMA
     Dosage: 400 MG, BID
     Dates: start: 20111205, end: 20120101

REACTIONS (9)
  - RENAL CELL CARCINOMA [None]
  - ORAL PAIN [None]
  - DIZZINESS [None]
  - HYPOPHAGIA [None]
  - APHAGIA [None]
  - GLOSSODYNIA [None]
  - BALANCE DISORDER [None]
  - VOMITING [None]
  - NAUSEA [None]
